FAERS Safety Report 11640814 (Version 1)
Quarter: 2015Q4

REPORT INFORMATION
  Report Type: Spontaneous
  Country: US (occurrence: US)
  Receive Date: 20151019
  Receipt Date: 20151019
  Transmission Date: 20160304
  Serious: No
  Sender: FDA-Public Use
  Company Number: US-GLAXOSMITHKLINE-US2015147402

PATIENT
  Sex: Female

DRUGS (6)
  1. LAMICTAL XR [Suspect]
     Active Substance: LAMOTRIGINE
     Dosage: DOSE INDRESED TO 300 MG IN THE MORNING AND 100 MG IN THE EVENING
  2. FOLIC [Concomitant]
  3. LAMICTAL XR [Suspect]
     Active Substance: LAMOTRIGINE
     Indication: EPILEPSY
     Dosage: 300 MG, BID
     Route: 048
  4. LAMICTAL XR [Suspect]
     Active Substance: LAMOTRIGINE
     Dosage: 300 MG, 1D
  5. VITAMIN B12 [Concomitant]
     Active Substance: CYANOCOBALAMIN
     Dosage: UNK
  6. CARVEDILOL. [Concomitant]
     Active Substance: CARVEDILOL
     Dosage: UNK

REACTIONS (5)
  - Drug administration error [Unknown]
  - Insomnia [Recovering/Resolving]
  - Anger [Recovering/Resolving]
  - Frustration [Recovering/Resolving]
  - Abnormal dreams [Recovering/Resolving]
